FAERS Safety Report 6584462-X (Version None)
Quarter: 2010Q1

REPORT INFORMATION
  Report Type: 
  Country: None (occurrence: None)
  Receive Date: 20100216
  Receipt Date: 20100212
  Transmission Date: 20100710
  Serious: No
  Sender: FDA-Public Use
  Company Number: US-ABBOTT-10P-163-0626122-00

PATIENT
  Sex: Male
  Weight: 108.96 kg

DRUGS (2)
  1. SIMCOR [Suspect]
     Indication: CORONARY ARTERY DISEASE
     Dosage: 500/20 MG DAILY
     Route: 048
     Dates: start: 20100211
  2. ANTI-INFLAMMATORY [Concomitant]
     Indication: GOUT

REACTIONS (1)
  - FLUSHING [None]
